FAERS Safety Report 16153187 (Version 4)
Quarter: 2019Q2

REPORT INFORMATION
  Report Type: Spontaneous
  Country: US (occurrence: US)
  Receive Date: 20190403
  Receipt Date: 20190628
  Transmission Date: 20190711
  Serious: Yes (Other)
  Sender: FDA-Public Use
  Company Number: US-PFIZER INC-2018529175

PATIENT
  Age: 75 Year
  Sex: Male
  Weight: 80 kg

DRUGS (3)
  1. ELIQUIS [Suspect]
     Active Substance: APIXABAN
     Indication: EMBOLISM VENOUS
     Dosage: 5 MG, UNK
     Route: 065
  2. ELIQUIS [Suspect]
     Active Substance: APIXABAN
     Dosage: 2.5 MG, UNK
     Route: 065
  3. METHOTREXATE SODIUM. [Suspect]
     Active Substance: METHOTREXATE SODIUM
     Dosage: UNK
     Route: 065

REACTIONS (4)
  - Thrombocytopenia [Unknown]
  - Epistaxis [Unknown]
  - Intentional underdose [Unknown]
  - Wrong technique in product usage process [Unknown]
